FAERS Safety Report 5473352-1 (Version None)
Quarter: 2007Q4

REPORT INFORMATION
  Report Type: 
  Country: None (occurrence: None)
  Receive Date: 20071001
  Receipt Date: 20070925
  Transmission Date: 20080405
  Serious: Yes (Life-Threatening, Hospitalization)
  Sender: FDA-Public Use
  Company Number: JP-AVENTIS-200718367GDDC

PATIENT
  Age: 90 Year
  Sex: Male

DRUGS (10)
  1. RIFAMPICIN [Suspect]
     Indication: TUBERCULOSIS
     Route: 048
     Dates: start: 20070426, end: 20070803
  2. ISCOTIN                            /00030201/ [Suspect]
     Indication: TUBERCULOSIS
     Route: 048
     Dates: start: 20070426, end: 20070803
  3. EBUTOL                             /00022301/ [Suspect]
     Indication: PULMONARY TUBERCULOSIS
     Route: 048
     Dates: start: 20070426, end: 20070803
  4. EBUTOL                             /00022301/ [Suspect]
     Indication: TUBERCULOUS PLEURISY
     Route: 048
     Dates: start: 20070426, end: 20070803
  5. TAGAMET [Suspect]
     Indication: GASTROOESOPHAGEAL REFLUX PROPHYLAXIS
     Route: 048
     Dates: start: 20070415, end: 20070803
  6. MUCODYNE [Concomitant]
     Indication: TUBERCULOSIS
     Route: 048
     Dates: start: 20070415, end: 20070803
  7. MUCOSOLVAN [Concomitant]
     Indication: TUBERCULOSIS
     Route: 048
     Dates: start: 20070415, end: 20070803
  8. CODIENE [Concomitant]
     Indication: COUGH
     Route: 048
     Dates: start: 20070415, end: 20070803
  9. MAGMITT [Concomitant]
     Indication: CONSTIPATION PROPHYLAXIS
     Route: 048
     Dates: start: 20070415, end: 20070803
  10. HALFDIGOXIN [Concomitant]
     Route: 048
     Dates: start: 20070421, end: 20070803

REACTIONS (7)
  - BLOOD ALKALINE PHOSPHATASE INCREASED [None]
  - BLOOD IMMUNOGLOBULIN E INCREASED [None]
  - DRUG INEFFECTIVE [None]
  - GAMMA-GLUTAMYLTRANSFERASE INCREASED [None]
  - IDIOPATHIC THROMBOCYTOPENIC PURPURA [None]
  - PLATELET COUNT DECREASED [None]
  - RED BLOOD CELL COUNT DECREASED [None]
